FAERS Safety Report 7501779-2 (Version None)
Quarter: 2011Q2

REPORT INFORMATION
  Report Type: 
  Country: None (occurrence: None)
  Receive Date: 20110523
  Receipt Date: 20110523
  Transmission Date: 20111010
  Serious: Yes (Hospitalization)
  Sender: FDA-Public Use
  Company Number: None

PATIENT
  Age: 68 Year
  Sex: Male
  Weight: 79.3 kg

DRUGS (12)
  1. TRAMADOL HCL [Suspect]
     Indication: PAIN
     Dosage: 50MG Q4HRS PRN PO RECENT
     Route: 048
  2. TOPROL-XL [Concomitant]
  3. CRESTOR [Concomitant]
  4. ULORIC [Concomitant]
  5. ACTOS [Concomitant]
  6. MICARDIS [Concomitant]
  7. PLAVIX [Concomitant]
  8. PLETAL [Concomitant]
  9. PROTONIX [Concomitant]
  10. LASIX [Concomitant]
  11. ISOSORBIDE [Concomitant]
  12. NORVASC [Concomitant]

REACTIONS (4)
  - MENTAL STATUS CHANGES [None]
  - RENAL TUBULAR NECROSIS [None]
  - RENAL FAILURE ACUTE [None]
  - DELIRIUM [None]
